FAERS Safety Report 24159172 (Version 2)
Quarter: 2024Q3

REPORT INFORMATION
  Report Type: Spontaneous
  Country: US (occurrence: US)
  Receive Date: 20240731
  Receipt Date: 20240826
  Transmission Date: 20241016
  Serious: Yes (Hospitalization)
  Sender: GRIFOLS
  Company Number: US-RIGEL Pharmaceuticals, INC-20240700068

PATIENT
  Age: 83 Year
  Sex: Female
  Weight: 56.699 kg

DRUGS (3)
  1. HUMAN IMMUNOGLOBULIN G [Suspect]
     Active Substance: HUMAN IMMUNOGLOBULIN G
     Indication: Product used for unknown indication
     Dosage: UNK UNKNOWN, SINGLE
     Route: 042
     Dates: start: 20240703, end: 20240703
  2. HUMAN IMMUNOGLOBULIN G [Suspect]
     Active Substance: HUMAN IMMUNOGLOBULIN G
     Dosage: UNK UNKNOWN, SINGLE
     Route: 042
     Dates: start: 20240709, end: 20240709
  3. TAVALISSE [Concomitant]
     Active Substance: FOSTAMATINIB
     Indication: Immune thrombocytopenia
     Dosage: 100 MILLIGRAM, BID
     Route: 048
     Dates: start: 20240701

REACTIONS (3)
  - Full blood count abnormal [Unknown]
  - Constipation [Recovering/Resolving]
  - Blood pressure increased [Unknown]

NARRATIVE: CASE EVENT DATE: 20240701
